FAERS Safety Report 8738384 (Version 2)
Quarter: 2013Q4

REPORT INFORMATION
  Report Type: Spontaneous
  Country: US (occurrence: US)
  Receive Date: 20120823
  Receipt Date: 20131101
  Transmission Date: 20140711
  Serious: No
  Sender: FDA-Public Use
  Company Number: US-009507513-1208USA007945

PATIENT
  Age: 43 Year
  Sex: Male
  Weight: 105.21 kg

DRUGS (6)
  1. PEG-INTRON [Suspect]
     Dosage: 150 MICROGRAM/0.5 ML, QW
     Route: 058
  2. REBETOL [Suspect]
     Dosage: 200 MG, UNK
     Route: 048
  3. CYANOCOBALAMIN [Concomitant]
     Dosage: 2500 MICROGRAM, UNK
     Route: 058
  4. VITAMINS (UNSPECIFIED) [Concomitant]
     Route: 048
  5. TYLENOL [Concomitant]
     Dosage: 650 MG, UNK
     Route: 048
  6. TELAPREVIR [Concomitant]
     Dosage: 375 MG, UNK
     Route: 048

REACTIONS (5)
  - Chest pain [Unknown]
  - Anaemia [Unknown]
  - Rash [Unknown]
  - Pruritus [Unknown]
  - Dry skin [Unknown]
